FAERS Safety Report 7987930-9 (Version None)
Quarter: 2011Q4

REPORT INFORMATION
  Report Type: 
  Country: None (occurrence: None)
  Receive Date: 20111216
  Receipt Date: 20101118
  Transmission Date: 20120403
  Serious: Yes (Other)
  Sender: FDA-Public Use
  Company Number: US-BRISTOL-MYERS SQUIBB COMPANY-15394844

PATIENT
  Age: 36 Year
  Sex: Male
  Weight: 145 kg

DRUGS (11)
  1. TRILEPTAL [Concomitant]
  2. ARICEPT [Concomitant]
  3. PERCOCET [Concomitant]
  4. WELLBUTRIN [Concomitant]
  5. LOTREL [Concomitant]
  6. AMBIEN [Concomitant]
  7. LORAZEPAM [Concomitant]
  8. STRATTERA [Concomitant]
  9. ABILIFY [Suspect]
  10. MELOXICAM [Concomitant]
  11. TRAMADOL HCL [Concomitant]
     Indication: PAIN

REACTIONS (3)
  - SUICIDAL IDEATION [None]
  - SOMNOLENCE [None]
  - AGGRESSION [None]
